FAERS Safety Report 8013305-2 (Version None)
Quarter: 2011Q4

REPORT INFORMATION
  Report Type: 
  Country: None (occurrence: None)
  Receive Date: 20111223
  Receipt Date: 20111212
  Transmission Date: 20120403
  Serious: Yes (Other)
  Sender: FDA-Public Use
  Company Number: FK201102946

PATIENT
  Age: 75 Year
  Sex: Female

DRUGS (3)
  1. CEFTAZIDIME [Suspect]
     Indication: ENDOPHTHALMITIS
     Dosage: , INTRAOCULAR
     Route: 031
  2. VANCOMYCIN [Suspect]
     Indication: ENDOPHTHALMITIS
     Dosage: , INTRAOCULAR
     Route: 031
  3. GENTAMICIN [Suspect]
     Indication: ENDOPHTHALMITIS
     Dosage: , INTRAOCULAR
     Route: 031

REACTIONS (3)
  - TOXICITY TO VARIOUS AGENTS [None]
  - RETINAL INFARCTION [None]
  - RETINAL HAEMORRHAGE [None]
